FAERS Safety Report 9581986 (Version 2)
Quarter: 2013Q4

REPORT INFORMATION
  Report Type: Report from Study
  Country: PR (occurrence: PR)
  Receive Date: 20131002
  Receipt Date: 20131002
  Transmission Date: 20140711
  Serious: Yes (Death, Other)
  Sender: FDA-Public Use
  Company Number: PR-ABBVIE-13P-131-1057964-00

PATIENT
  Sex: Male
  Weight: 82.63 kg

DRUGS (1)
  1. HUMIRA [Suspect]
     Indication: CROHN^S DISEASE
     Route: 058
     Dates: start: 2006, end: 2010

REACTIONS (3)
  - Cardio-respiratory arrest [Fatal]
  - Sepsis [Fatal]
  - Intestinal obstruction [Unknown]
